FAERS Safety Report 4433205-4 (Version None)
Quarter: 2004Q3

REPORT INFORMATION
  Report Type: 
  Country: None (occurrence: None)
  Receive Date: 20040823
  Receipt Date: 20040811
  Transmission Date: 20050211
  Serious: Yes (Disabling, Other)
  Sender: FDA-Public Use
  Company Number: GBWYE971713AUG04

PATIENT
  Sex: 0

DRUGS (2)
  1. EFFEXOR [Suspect]
     Indication: DEPRESSION
     Dosage: 1 TABLET 2X PER 1 DAY ORAL
     Route: 048
     Dates: start: 20031215, end: 20040805
  2. PREGADAY (FERROUS FUMARATE/FOLIC ACID) [Concomitant]

REACTIONS (2)
  - CLEFT LIP AND PALATE [None]
  - DRUG EXPOSURE DURING PREGNANCY [None]
